FAERS Safety Report 21908308 (Version 1)
Quarter: 2023Q1

REPORT INFORMATION
  Report Type: Other
  Country: SE (occurrence: SE)
  Receive Date: 20230125
  Receipt Date: 20230125
  Transmission Date: 20230418
  Serious: Yes (Hospitalization)
  Sender: FDA-Public Use
  Company Number: None

PATIENT
  Age: 53 Year
  Sex: Female

DRUGS (4)
  1. CLARISCAN [Suspect]
     Active Substance: GADOTERATE MEGLUMINE
     Indication: Diagnostic procedure
     Dosage: 13 ML, SINGLE
     Route: 042
     Dates: start: 20221102, end: 20221102
  2. CLARISCAN [Suspect]
     Active Substance: GADOTERATE MEGLUMINE
     Indication: Product used for unknown indication
  3. OXAZEPAM [Concomitant]
     Active Substance: OXAZEPAM
  4. MIDAZOLAM [Concomitant]
     Active Substance: MIDAZOLAM

REACTIONS (1)
  - Dyspnoea [Recovering/Resolving]

NARRATIVE: CASE EVENT DATE: 20221102
